FAERS Safety Report 10414905 (Version 1)
Quarter: 2014Q3

REPORT INFORMATION
  Report Type: Spontaneous
  Country: US (occurrence: US)
  Receive Date: 20140828
  Receipt Date: 20140828
  Transmission Date: 20150326
  Serious: Yes (Other)
  Sender: FDA-Public Use
  Company Number: US-ASTRAZENECA-2014SE62989

PATIENT
  Age: 63 Year
  Sex: Female
  Weight: 96.2 kg

DRUGS (16)
  1. SYNTHROID [Concomitant]
     Active Substance: LEVOTHYROXINE SODIUM
     Dosage: 0.112 NR
     Route: 065
  2. COZAAR [Concomitant]
     Active Substance: LOSARTAN POTASSIUM
     Route: 065
  3. LOPRESSOR [Concomitant]
     Active Substance: METOPROLOL TARTRATE
     Dosage: 50 MG NR
     Route: 065
  4. NEXIUM [Suspect]
     Active Substance: ESOMEPRAZOLE MAGNESIUM
     Indication: GASTROOESOPHAGEAL REFLUX DISEASE
     Route: 048
  5. ASPIRIN LOW DOSE [Concomitant]
     Active Substance: ASPIRIN
     Dosage: 2 TABLETS DAILY
     Route: 065
  6. QNASL [Concomitant]
     Active Substance: BECLOMETHASONE DIPROPIONATE
     Indication: MULTIPLE ALLERGIES
     Dosage: NOT REPORTED NR
     Route: 045
  7. VICTOZA [Concomitant]
     Active Substance: LIRAGLUTIDE
     Dosage: NOT REPORTED NR
     Route: 065
  8. HUMALOG [Concomitant]
     Active Substance: INSULIN LISPRO
     Indication: DIABETES MELLITUS
     Dosage: VARIES VIA PUMP UNK
     Route: 058
  9. DEMADEX [Concomitant]
     Active Substance: TORSEMIDE
     Dosage: 10 MG. NR
     Route: 065
  10. SYMBICORT [Suspect]
     Active Substance: BUDESONIDE\FORMOTEROL FUMARATE DIHYDRATE
     Indication: ASTHMA
     Dosage: 2 PUFFS BID
     Route: 055
     Dates: start: 2007
  11. ACTEMRA [Concomitant]
     Active Substance: TOCILIZUMAB
     Indication: RHEUMATOID ARTHRITIS
     Dosage: NOT REPORTED MONTH
     Route: 065
  12. METANX [Concomitant]
     Active Substance: LEVOMEFOLATE CALCIUM\METHYLCOBALAMIN\PYRIDOXAL PHOSPHATE ANHYDROUS
     Dosage: NOT REPORTED BID
     Route: 065
  13. SINGULAIR [Concomitant]
     Active Substance: MONTELUKAST SODIUM
     Dosage: 10 MG. NR
     Route: 065
  14. PRAVACHOL [Concomitant]
     Active Substance: PRAVASTATIN SODIUM
     Dosage: NOT REPORTED NR
     Route: 065
  15. NEXIUM [Suspect]
     Active Substance: ESOMEPRAZOLE MAGNESIUM
     Indication: GASTROOESOPHAGEAL REFLUX DISEASE
     Route: 048
     Dates: start: 201402, end: 201402
  16. ARAVA [Concomitant]
     Active Substance: LEFLUNOMIDE
     Dosage: 10 MG. NR
     Route: 065

REACTIONS (4)
  - Fracture delayed union [Recovered/Resolved]
  - Diarrhoea [Recovered/Resolved]
  - Off label use [Unknown]
  - Stress fracture [Not Recovered/Not Resolved]

NARRATIVE: CASE EVENT DATE: 2013
